FAERS Safety Report 25476433 (Version 1)
Quarter: 2025Q2

REPORT INFORMATION
  Report Type: Spontaneous
  Country: CN (occurrence: CN)
  Receive Date: 20250625
  Receipt Date: 20250625
  Transmission Date: 20250716
  Serious: Yes (Hospitalization, Other)
  Sender: BAXTER
  Company Number: None

PATIENT
  Age: 72 Year
  Sex: Female
  Weight: 63.5 kg

DRUGS (8)
  1. CYCLOPHOSPHAMIDE [Suspect]
     Active Substance: CYCLOPHOSPHAMIDE
     Indication: Invasive papillary breast carcinoma
     Dosage: 0.6 G, 1X A WEEK
     Route: 041
     Dates: start: 20250525, end: 20250531
  2. CYCLOPHOSPHAMIDE [Suspect]
     Active Substance: CYCLOPHOSPHAMIDE
     Indication: Breast cancer stage II
  3. FLUOROURACIL [Suspect]
     Active Substance: FLUOROURACIL
     Indication: Invasive papillary breast carcinoma
     Dosage: 0.5 G, 1X A WEEK
     Route: 041
     Dates: start: 20250525, end: 20250531
  4. FLUOROURACIL [Suspect]
     Active Substance: FLUOROURACIL
     Indication: Breast cancer stage II
  5. METHOTREXATE [Suspect]
     Active Substance: METHOTREXATE
     Indication: Invasive papillary breast carcinoma
     Dosage: 60 MG, 1X A WEEK
     Route: 041
     Dates: start: 20250525, end: 20250531
  6. METHOTREXATE [Suspect]
     Active Substance: METHOTREXATE
     Indication: Breast cancer stage II
  7. METHYLPREDNISOLONE SODIUM SUCCINATE [Suspect]
     Active Substance: METHYLPREDNISOLONE SODIUM SUCCINATE
     Indication: Chemotherapy side effect prophylaxis
     Dosage: 40 MG, 1X A WEEK
     Route: 041
     Dates: start: 20250525, end: 20250531
  8. ONDANSETRON HYDROCHLORIDE [Suspect]
     Active Substance: ONDANSETRON HYDROCHLORIDE
     Indication: Antiemetic supportive care
     Dosage: 8 MG, 1X A WEEK
     Route: 041
     Dates: start: 20250525, end: 20250531

REACTIONS (9)
  - Stomatitis necrotising [Recovering/Resolving]
  - Oral mucosa erosion [Recovering/Resolving]
  - Swelling face [Recovering/Resolving]
  - Breath odour [Recovering/Resolving]
  - White blood cell count decreased [Recovering/Resolving]
  - Platelet count decreased [Recovering/Resolving]
  - Myelosuppression [Unknown]
  - Mental disorder [Unknown]
  - Trismus [Recovering/Resolving]

NARRATIVE: CASE EVENT DATE: 20250605
